FAERS Safety Report 9040981 (Version 1)
Quarter: 2013Q1

REPORT INFORMATION
  Report Type: Spontaneous
  Country: US (occurrence: None)
  Receive Date: 20130123
  Receipt Date: 20130123
  Transmission Date: 20140127
  Serious: Yes (Hospitalization, Disabling, Other)
  Sender: FDA-Public Use
  Company Number: None

PATIENT
  Age: 31 Year
  Sex: Male
  Weight: 90.72 kg

DRUGS (4)
  1. LEVAQUIN [Suspect]
     Indication: PNEUMONIA
     Dosage: LEVAQUIN  1 DAY  PILL
     Dates: start: 20101102, end: 20101107
  2. AVELOX [Suspect]
     Dosage: AVELOX   5 DAYS    IV - 2 DAYS?                                  PILL - 3 DAYS
  3. PREDNISONE [Concomitant]
  4. HYDROCORTISONE [Concomitant]

REACTIONS (6)
  - Neuropathy peripheral [None]
  - Muscle twitching [None]
  - Tendon disorder [None]
  - Pain [None]
  - Multiple injuries [None]
  - Mobility decreased [None]
